FAERS Safety Report 25265644 (Version 4)
Quarter: 2025Q2

REPORT INFORMATION
  Report Type: Report from Study
  Country: DE (occurrence: DE)
  Receive Date: 20250503
  Receipt Date: 20250612
  Transmission Date: 20250716
  Serious: Yes (Death, Life-Threatening, Hospitalization, Other)
  Sender: CELLTRION
  Company Number: DE-ELI_LILLY_AND_COMPANY-DE202405017081

PATIENT

DRUGS (14)
  1. RITUXIMAB [Suspect]
     Active Substance: RITUXIMAB
     Indication: Mantle cell lymphoma
     Dosage: UNK, WEEKLY (1/W)
     Route: 065
  2. RITUXIMAB [Suspect]
     Active Substance: RITUXIMAB
     Indication: Thrombocytopenia
  3. RITUXIMAB [Suspect]
     Active Substance: RITUXIMAB
  4. RITUXIMAB [Suspect]
     Active Substance: RITUXIMAB
  5. RITUXIMAB [Suspect]
     Active Substance: RITUXIMAB
  6. PIRTOBRUTINIB [Suspect]
     Active Substance: PIRTOBRUTINIB
     Indication: Mantle cell lymphoma
     Route: 048
     Dates: start: 20240405
  7. PIRTOBRUTINIB [Suspect]
     Active Substance: PIRTOBRUTINIB
     Route: 048
     Dates: start: 20240604
  8. PIRTOBRUTINIB [Suspect]
     Active Substance: PIRTOBRUTINIB
     Route: 048
     Dates: start: 20240617
  9. LENALIDOMIDE [Suspect]
     Active Substance: LENALIDOMIDE
     Indication: Product used for unknown indication
     Route: 065
  10. BISOPROLOL [Concomitant]
     Active Substance: BISOPROLOL
     Indication: Tachycardia
     Route: 048
     Dates: start: 2023
  11. LAMOTRIGINE [Concomitant]
     Active Substance: LAMOTRIGINE
     Indication: Epilepsy
     Route: 048
  12. LAMOTRIGINE [Concomitant]
     Active Substance: LAMOTRIGINE
     Route: 048
  13. SULFAMETHOXAZOLE\TRIMETHOPRIM [Concomitant]
     Active Substance: SULFAMETHOXAZOLE\TRIMETHOPRIM
     Indication: Pneumocystis jirovecii pneumonia
  14. ACYCLOVIR [Concomitant]
     Active Substance: ACYCLOVIR
     Indication: Varicella zoster virus infection

REACTIONS (24)
  - Malignant neoplasm progression [Fatal]
  - Sepsis [Fatal]
  - Neutropenic infection [Recovered/Resolved]
  - General physical health deterioration [Unknown]
  - Malignant neoplasm progression [Unknown]
  - Pneumonia [Recovering/Resolving]
  - Sepsis [Unknown]
  - Renal failure [Unknown]
  - Neutropenia [Unknown]
  - Febrile infection [Unknown]
  - Splenomegaly [Unknown]
  - Granulocyte percentage decreased [Unknown]
  - Haematocrit decreased [Unknown]
  - Mean cell haemoglobin increased [Unknown]
  - Mean cell haemoglobin concentration increased [Unknown]
  - Mean platelet volume decreased [Unknown]
  - Monocyte count increased [Unknown]
  - Platelet distribution width decreased [Unknown]
  - Plateletcrit decreased [Unknown]
  - Lymphocytosis [Unknown]
  - Red blood cell count decreased [Unknown]
  - Platelet count decreased [Unknown]
  - Haemoglobin decreased [Unknown]
  - Intentional product use issue [Unknown]

NARRATIVE: CASE EVENT DATE: 20240528
